FAERS Safety Report 26201393 (Version 1)
Quarter: 2025Q4

REPORT INFORMATION
  Report Type: Spontaneous
  Country: US (occurrence: US)
  Receive Date: 20251226
  Receipt Date: 20251226
  Transmission Date: 20260118
  Serious: No
  Sender: Kenvue
  Company Number: US-KENVUE-20251201879

PATIENT
  Age: 8 Decade
  Sex: Male

DRUGS (2)
  1. MENS ROGAINE EXTRA STRENGTH [Suspect]
     Active Substance: MINOXIDIL
     Indication: Alopecia
     Dosage: HAVE BEEN USING ROGAINE FOR SIX MONTHS
     Route: 065
  2. MENS ROGAINE EXTRA STRENGTH [Suspect]
     Active Substance: MINOXIDIL
     Dosage: HALF A CAPFUL, TWICE A DAY,  HAVE BEEN USING ROGAINE FOR SIX MONTHS
     Route: 048
     Dates: start: 202504

REACTIONS (1)
  - Drug ineffective [Unknown]
